FAERS Safety Report 6659937-5 (Version None)
Quarter: 2010Q1

REPORT INFORMATION
  Report Type: 
  Country: None (occurrence: None)
  Receive Date: 20100330
  Receipt Date: 20100326
  Transmission Date: 20100710
  Serious: Yes (Other)
  Sender: FDA-Public Use
  Company Number: GB-BRISTOL-MYERS SQUIBB COMPANY-14908974

PATIENT
  Age: 72 Year
  Sex: Female
  Weight: 64 kg

DRUGS (9)
  1. ERBITUX [Suspect]
     Indication: RECTAL CANCER
     Route: 042
     Dates: start: 20090928, end: 20091102
  2. CAMPTOSAR [Suspect]
     Indication: RECTAL CANCER
     Dosage: DOSE CHANGED TO 76.5MG WEEKLY UNTIL 2NOV09
     Route: 042
     Dates: start: 20091005, end: 20091102
  3. CAPECITABINE [Suspect]
     Indication: RECTAL CANCER
     Dosage: INF:6
     Route: 048
     Dates: start: 20091005, end: 20091113
  4. RADIATION THERAPY [Suspect]
     Indication: RECTAL CANCER
     Dates: start: 20091005, end: 20091113
  5. SYMBICORT [Concomitant]
     Indication: ASTHMA
     Dosage: 1DF-200MCG:6MG
  6. CO-DYDRAMOL [Concomitant]
     Indication: ANALGESIC THERAPY
     Dosage: 1 -2 TABS DAILY
     Dates: start: 20090810
  7. LOSARTAN POTASSIUM [Concomitant]
     Indication: HYPERTENSION
  8. ATORVASTATIN CALCIUM [Concomitant]
     Indication: CARDIAC DISORDER
  9. TERBUTALINE SULFATE [Concomitant]
     Indication: ASTHMA

REACTIONS (1)
  - DEEP VEIN THROMBOSIS [None]
